FAERS Safety Report 14032098 (Version 1)
Quarter: 2017Q4

REPORT INFORMATION
  Report Type: Spontaneous
  Country: US (occurrence: US)
  Receive Date: 20171002
  Receipt Date: 20171002
  Transmission Date: 20180321
  Serious: Yes (Other)
  Sender: FDA-Public Use
  Company Number: US-PFIZER INC-2017416943

PATIENT
  Age: 66 Year
  Sex: Female
  Weight: 84 kg

DRUGS (5)
  1. BABY ASPIRIN [Concomitant]
     Active Substance: ASPIRIN
     Dosage: UNK, 3X/DAY
     Route: 048
     Dates: start: 201701
  2. ZOLEDRONATE [Concomitant]
     Active Substance: ZOLEDRONIC ACID
     Indication: BONE LOSS
     Dosage: UNK
  3. SYNTHROID [Concomitant]
     Active Substance: LEVOTHYROXINE SODIUM
     Dosage: 75 UG, UNK
     Route: 048
  4. EXEMESTANE. [Suspect]
     Active Substance: EXEMESTANE
     Dosage: UNK
     Dates: start: 20170301
  5. LISINOPRIL. [Concomitant]
     Active Substance: LISINOPRIL
     Indication: HYPERTENSION
     Dosage: 10 MG, 1X/DAY
     Route: 048

REACTIONS (14)
  - Uveitis [Unknown]
  - Thyroid disorder [Unknown]
  - Asthenia [Unknown]
  - Musculoskeletal pain [Unknown]
  - Arthralgia [Unknown]
  - Myalgia [Unknown]
  - Malaise [Unknown]
  - Weight increased [Unknown]
  - Pain in extremity [Unknown]
  - Gait disturbance [Unknown]
  - Blindness [Unknown]
  - Back pain [Unknown]
  - Neck pain [Unknown]
  - Chest pain [Unknown]

NARRATIVE: CASE EVENT DATE: 2017
